FAERS Safety Report 19051177 (Version 2)
Quarter: 2021Q3

REPORT INFORMATION
  Report Type: Report from Study
  Country: BR (occurrence: BR)
  Receive Date: 20210324
  Receipt Date: 20210720
  Transmission Date: 20211014
  Serious: Yes (Other)
  Sender: FDA-Public Use
  Company Number: NVSC2021BR061060

PATIENT
  Sex: Female

DRUGS (4)
  1. ETANERCEPT [Suspect]
     Active Substance: ETANERCEPT
     Dosage: UNK
     Route: 065
     Dates: start: 201801, end: 201804
  2. ETANERCEPT [Suspect]
     Active Substance: ETANERCEPT
     Indication: PRODUCT USED FOR UNKNOWN INDICATION
     Dosage: UNK
     Route: 065
     Dates: start: 201712
  3. COSENTYX [Suspect]
     Active Substance: SECUKINUMAB
     Indication: PSORIATIC ARTHROPATHY
  4. COSENTYX [Suspect]
     Active Substance: SECUKINUMAB
     Indication: ANKYLOSING SPONDYLITIS
     Dosage: 150 G, QW (IN WEEKS 0 TO 4 AND THEN TO APPLY IT EVERY 4 WEEKS)
     Route: 058

REACTIONS (9)
  - Pain [Unknown]
  - Product prescribing error [Not Recovered/Not Resolved]
  - Emotional disorder [Unknown]
  - Therapeutic product effect delayed [Unknown]
  - Tuberculosis [Unknown]
  - Hypersensitivity [Unknown]
  - Immunodeficiency [Unknown]
  - Psoriatic arthropathy [Unknown]
  - Fibromyalgia [Unknown]
